FAERS Safety Report 7669399-7 (Version None)
Quarter: 2011Q3

REPORT INFORMATION
  Report Type: 
  Country: None (occurrence: None)
  Receive Date: 20110808
  Receipt Date: 20110802
  Transmission Date: 20111222
  Serious: Yes (Hospitalization, Other)
  Sender: FDA-Public Use
  Company Number: DK-ROCHE-794031

PATIENT
  Sex: Male

DRUGS (2)
  1. AMPHETAMINE SULFATE [Suspect]
     Route: 065
     Dates: start: 20110701, end: 20110701
  2. CLONAZEPAM [Suspect]
     Route: 065
     Dates: start: 20110701, end: 20110701

REACTIONS (6)
  - CONFUSIONAL STATE [None]
  - PYREXIA [None]
  - AGGRESSION [None]
  - COMA [None]
  - BALANCE DISORDER [None]
  - PRODUCT COUNTERFEIT [None]
